FAERS Safety Report 4374777-8 (Version None)
Quarter: 2004Q2

REPORT INFORMATION
  Report Type: 
  Country: None (occurrence: None)
  Receive Date: 20040604
  Receipt Date: 20040525
  Transmission Date: 20050107
  Serious: No
  Sender: FDA-Public Use
  Company Number: 2004-BP-04068BP

PATIENT
  Age: 33 Year
  Sex: Female

DRUGS (1)
  1. VIRAMUNE [Suspect]
     Indication: HIV INFECTION
     Dosage: 200 MG , PO
     Route: 048
     Dates: start: 20021029

REACTIONS (4)
  - CHOLESTASIS [None]
  - COMPLICATIONS OF MATERNAL EXPOSURE TO THERAPEUTIC DRUGS [None]
  - DRUG HYPERSENSITIVITY [None]
  - LIVER DISORDER [None]
